FAERS Safety Report 5926697 (Version 13)
Quarter: 2013Q3

REPORT INFORMATION
  Report Type: Spontaneous
  Country: US (occurrence: US)
  Receive Date: 20051110
  Receipt Date: 20130816
  Transmission Date: 20140515
  Serious: Yes (Death, Life-Threatening, Hospitalization)
  Sender: FDA-Public Use
  Company Number: US-ELI_LILLY_AND_COMPANY-USA0511112667

PATIENT
  Age: 56 Year
  Sex: Female
  Weight: 61.22 kg

DRUGS (16)
  1. CYMBALTA [Suspect]
     Indication: DEPRESSION
     Dosage: 60 MG, DAILY (1/D)
     Route: 048
     Dates: start: 20041123, end: 20050915
  2. CYMBALTA [Suspect]
     Dosage: 60 MG, DAILY (1/D)
     Route: 048
     Dates: start: 20050915, end: 20051019
  3. MS CONTIN [Concomitant]
     Indication: BACK PAIN
     Dosage: 15 MG, 2/D
     Route: 048
  4. SYNTHROID [Concomitant]
     Dosage: 0.15 MG, OTHER
     Route: 048
  5. CELEBREX [Concomitant]
     Indication: BACK PAIN
     Dosage: 200 MG, DAILY (1/D)
     Route: 048
     Dates: start: 20040909
  6. MIRTAZAPINE [Concomitant]
     Indication: DEPRESSION
     Dosage: 15 MG, DAILY (1/D)
     Route: 048
     Dates: start: 20050915
  7. GABAPENTIN [Concomitant]
     Dosage: 300 MG, 2/D
  8. LORAZEPAM [Concomitant]
     Dosage: 0.5 MG, 4/D
     Route: 048
  9. METHOCARBAMOL [Concomitant]
     Dosage: 750 MG, 2/D
     Route: 048
  10. PROMETHAZINE [Concomitant]
     Dosage: 25 MG, DAILY (1/D)
  11. TRAMADOL [Concomitant]
     Dosage: 50 MG, 3/D
  12. HYDROCODONE W/ACETAMINOPHEN [Concomitant]
     Indication: BACK PAIN
     Dosage: 1 D/F, 4/D
  13. HYDROCODONE W/ACETAMINOPHEN [Concomitant]
     Dosage: UNK, AS NEEDED
  14. TYLENOL EXTRA-STRENGTH [Concomitant]
     Dosage: UNK, AS NEEDED
  15. ZOLOFT                                  /USA/ [Concomitant]
     Dosage: UNK, UNK
     Route: 048
     Dates: end: 20041123
  16. LACTULOSE [Concomitant]

REACTIONS (6)
  - Hepatic failure [Fatal]
  - Mental status changes [Unknown]
  - Hepatic cirrhosis [Not Recovered/Not Resolved]
  - Portal hypertension [Not Recovered/Not Resolved]
  - Hepatitis toxic [Unknown]
  - Drug interaction [Unknown]
